FAERS Safety Report 6068841-5 (Version None)
Quarter: 2009Q1

REPORT INFORMATION
  Report Type: 
  Country: None (occurrence: None)
  Receive Date: 20090203
  Receipt Date: 20090123
  Transmission Date: 20090719
  Serious: Yes (Hospitalization)
  Sender: FDA-Public Use
  Company Number: GXKR2009AR01120

PATIENT
  Age: 2 Year
  Sex: Female

DRUGS (1)
  1. AMLODIPINE+BENAZEPRIL [Suspect]
     Dosage: ORAL
     Route: 048
     Dates: start: 20090123

REACTIONS (3)
  - ACCIDENTAL OVERDOSE [None]
  - POLYURIA [None]
  - SOMNOLENCE [None]
